FAERS Safety Report 14376008 (Version 2)
Quarter: 2018Q2

REPORT INFORMATION
  Report Type: Spontaneous
  Country: FR (occurrence: FR)
  Receive Date: 20180111
  Receipt Date: 20180516
  Transmission Date: 20180711
  Serious: Yes (Hospitalization)
  Sender: FDA-Public Use
  Company Number: FR-MYLANLABS-2018M1002399

PATIENT
  Age: 52 Year
  Sex: Female

DRUGS (27)
  1. LEXAPRO [Suspect]
     Active Substance: ESCITALOPRAM OXALATE
     Indication: PSYCHOMOTOR HYPERACTIVITY
     Dosage: UNK
  2. QUETIAPINE. [Suspect]
     Active Substance: QUETIAPINE
     Indication: PSYCHOMOTOR HYPERACTIVITY
     Dosage: UNK
  3. LAROXYL [Suspect]
     Active Substance: AMITRIPTYLINE HYDROCHLORIDE
     Indication: PSYCHOMOTOR HYPERACTIVITY
     Dosage: UNK
  4. SEROPLEX [Suspect]
     Active Substance: ESCITALOPRAM OXALATE
     Indication: BIPOLAR DISORDER
     Dosage: UNK
  5. LEPTICUR [Suspect]
     Active Substance: TROPATEPINE HYDROCHLORIDE
     Indication: BIPOLAR DISORDER
     Dosage: UNK
  6. ABILIFY [Suspect]
     Active Substance: ARIPIPRAZOLE
     Indication: ATTENTION DEFICIT/HYPERACTIVITY DISORDER
     Dosage: UNK
  7. RITALINE [Suspect]
     Active Substance: METHYLPHENIDATE HYDROCHLORIDE
     Indication: ATTENTION DEFICIT/HYPERACTIVITY DISORDER
     Dosage: 100 MG, UNK
     Route: 048
  8. RITALINE [Suspect]
     Active Substance: METHYLPHENIDATE HYDROCHLORIDE
     Indication: PSYCHOMOTOR HYPERACTIVITY
     Dosage: UNK
  9. LAROXYL [Suspect]
     Active Substance: AMITRIPTYLINE HYDROCHLORIDE
     Indication: BIPOLAR DISORDER
     Dosage: UNK
     Route: 065
  10. METHYLPHENIDATE. [Suspect]
     Active Substance: METHYLPHENIDATE
     Indication: BIPOLAR DISORDER
     Dosage: 100 MG, UNK
     Route: 048
  11. LEXAPRO [Suspect]
     Active Substance: ESCITALOPRAM OXALATE
     Indication: ATTENTION DEFICIT/HYPERACTIVITY DISORDER
     Dosage: 10 MG, QD
     Route: 048
     Dates: start: 201202
  12. LEPTICUR [Suspect]
     Active Substance: TROPATEPINE HYDROCHLORIDE
     Indication: ATTENTION DEFICIT/HYPERACTIVITY DISORDER
     Dosage: UNK
  13. ABILIFY [Suspect]
     Active Substance: ARIPIPRAZOLE
     Indication: BIPOLAR DISORDER
     Dosage: UNK
  14. QUETIAPINE. [Suspect]
     Active Substance: QUETIAPINE
     Indication: ATTENTION DEFICIT/HYPERACTIVITY DISORDER
     Dosage: UNK
  15. LAROXYL [Suspect]
     Active Substance: AMITRIPTYLINE HYDROCHLORIDE
     Indication: ATTENTION DEFICIT/HYPERACTIVITY DISORDER
     Dosage: UNK
  16. METHYLPHENIDATE. [Suspect]
     Active Substance: METHYLPHENIDATE
     Indication: ATTENTION DEFICIT/HYPERACTIVITY DISORDER
     Dosage: 110 MG, QD
     Route: 048
     Dates: start: 201505
  17. METHYLPHENIDATE. [Suspect]
     Active Substance: METHYLPHENIDATE
     Indication: PSYCHOMOTOR HYPERACTIVITY
     Dosage: UNK
  18. SEROPLEX [Suspect]
     Active Substance: ESCITALOPRAM OXALATE
     Indication: PSYCHOMOTOR HYPERACTIVITY
     Dosage: UNK
  19. LEPTICUR [Suspect]
     Active Substance: TROPATEPINE HYDROCHLORIDE
     Indication: PSYCHOMOTOR HYPERACTIVITY
     Dosage: 15 MG, UNK
     Route: 065
  20. QUETIAPINE. [Suspect]
     Active Substance: QUETIAPINE
     Indication: BIPOLAR DISORDER
     Dosage: 400 MG, QD
     Route: 048
     Dates: start: 201206
  21. XEROQUEL [Suspect]
     Active Substance: QUETIAPINE FUMARATE
     Indication: ATTENTION DEFICIT/HYPERACTIVITY DISORDER
     Dosage: UNK
  22. XEROQUEL [Suspect]
     Active Substance: QUETIAPINE FUMARATE
     Indication: PSYCHOMOTOR HYPERACTIVITY
     Dosage: UNK
  23. ABILIFY [Suspect]
     Active Substance: ARIPIPRAZOLE
     Indication: PSYCHOMOTOR HYPERACTIVITY
     Dosage: 15 MG, QD
     Route: 048
     Dates: start: 201206
  24. LEXAPRO [Suspect]
     Active Substance: ESCITALOPRAM OXALATE
     Indication: BIPOLAR DISORDER
     Dosage: UNK
  25. XEROQUEL [Suspect]
     Active Substance: QUETIAPINE FUMARATE
     Indication: BIPOLAR DISORDER
     Dosage: 400 MG, QD
     Route: 048
     Dates: start: 201206
  26. SEROPLEX [Suspect]
     Active Substance: ESCITALOPRAM OXALATE
     Indication: ATTENTION DEFICIT/HYPERACTIVITY DISORDER
     Dosage: 10 MG, QD
     Route: 048
     Dates: start: 201202
  27. RITALINE [Suspect]
     Active Substance: METHYLPHENIDATE HYDROCHLORIDE
     Indication: BIPOLAR DISORDER
     Dosage: 110 MG, QD
     Route: 048
     Dates: start: 201505

REACTIONS (5)
  - Raynaud^s phenomenon [Not Recovered/Not Resolved]
  - Axonal neuropathy [Not Recovered/Not Resolved]
  - Cyanosis [Not Recovered/Not Resolved]
  - Product use in unapproved indication [Unknown]
  - Livedo reticularis [Not Recovered/Not Resolved]

NARRATIVE: CASE EVENT DATE: 2014
